FAERS Safety Report 12398488 (Version 1)
Quarter: 2016Q2

REPORT INFORMATION
  Report Type: Spontaneous
  Country: KR (occurrence: KR)
  Receive Date: 20160524
  Receipt Date: 20160524
  Transmission Date: 20160815
  Serious: Yes (Other)
  Sender: FDA-Public Use
  Company Number: KR-HQ SPECIALTY-KR-2016INT000286

PATIENT
  Age: 6 Month
  Sex: Female

DRUGS (3)
  1. CISPLATIN. [Suspect]
     Active Substance: CISPLATIN
     Indication: CONGENITAL RETINOBLASTOMA
     Dosage: 3 MG/KG, 1D EVERY 3 WEEKS, 13 CYCLES
  2. VINCRISTINE [Suspect]
     Active Substance: VINCRISTINE
     Indication: CONGENITAL RETINOBLASTOMA
     Dosage: 1.5 MG/M2, FOR 1D EVERY 3 WEEKS, 13 CYCLES
  3. ETOPOSIDE. [Suspect]
     Active Substance: ETOPOSIDE
     Indication: CONGENITAL RETINOBLASTOMA
     Dosage: 5 MG/KG, FOR 2D EVERY 3 WEEKS, 13 CYCLES

REACTIONS (1)
  - Febrile neutropenia [Recovered/Resolved]
